FAERS Safety Report 8283031-3 (Version None)
Quarter: 2012Q2

REPORT INFORMATION
  Report Type: 
  Country: None (occurrence: None)
  Receive Date: 20120413
  Receipt Date: 20120329
  Transmission Date: 20120825
  Serious: Yes (Death, Hospitalization)
  Sender: FDA-Public Use
  Company Number: HU-ROCHE-1053481

PATIENT
  Sex: Female
  Weight: 42 kg

DRUGS (1)
  1. XELODA [Suspect]
     Indication: BREAST CANCER METASTATIC
     Route: 048
     Dates: start: 20120305, end: 20120328

REACTIONS (2)
  - CEREBROVASCULAR ACCIDENT [None]
  - HYPONATRAEMIA [None]
